FAERS Safety Report 7218771-8 (Version None)
Quarter: 2011Q1

REPORT INFORMATION
  Report Type: 
  Country: None (occurrence: None)
  Receive Date: 20110110
  Receipt Date: 20100412
  Transmission Date: 20110831
  Serious: No
  Sender: FDA-Public Use
  Company Number: US-ABBOTT-10P-163-0637927-00

PATIENT
  Sex: Male

DRUGS (4)
  1. VICODIN [Suspect]
     Indication: TOOTH INFECTION
     Dates: start: 20100301, end: 20100321
  2. CLEOCIN [Suspect]
     Indication: ANTIBIOTIC THERAPY
  3. VICODIN [Suspect]
     Indication: PAIN MANAGEMENT
  4. CLEOCIN [Suspect]
     Indication: TOOTH INFECTION
     Dates: start: 20100319, end: 20100321

REACTIONS (2)
  - SWOLLEN TONGUE [None]
  - TONGUE DISORDER [None]
